FAERS Safety Report 16697021 (Version 2)
Quarter: 2019Q3

REPORT INFORMATION
  Report Type: Spontaneous
  Country: JP (occurrence: JP)
  Receive Date: 20190813
  Receipt Date: 20190911
  Transmission Date: 20191004
  Serious: Yes (Other)
  Sender: FDA-Public Use
  Company Number: JP-AMGEN-JPNSP2019127493

PATIENT
  Age: 84 Year
  Sex: Male
  Weight: 59 kg

DRUGS (10)
  1. ZOLPIDEM [Concomitant]
     Active Substance: ZOLPIDEM TARTRATE
     Dosage: 1 TABLET, QD
  2. BAYASPIRIN [Concomitant]
     Active Substance: ASPIRIN
     Dosage: 100 UNK, 1 TABLET, QD
  3. FERROMIA [Concomitant]
     Active Substance: SODIUM FERROUS CITRATE
     Dosage: 1 TABLET, BID
  4. SELBEX [Concomitant]
     Active Substance: TEPRENONE
     Dosage: 50 UNK, 1 CAPSULE, TID
  5. EVENITY [Suspect]
     Active Substance: ROMOSOZUMAB-AQQG
     Indication: OSTEOPOROSIS
     Dosage: 210 MILLIGRAM, QMO
     Route: 058
     Dates: start: 20190524
  6. EDIROL [Concomitant]
     Active Substance: ELDECALCITOL
     Dosage: 1 TABLET, QD
     Dates: start: 20190524
  7. LASIX [Concomitant]
     Active Substance: FUROSEMIDE
     Dosage: 40 UNK, 1 TABLET,QD
  8. ALOSENN [ACHILLEA MILLEFOLIUM;RUBIA TINCTORUM ROOT TINCTURE;SENNA ALEX [Concomitant]
     Active Substance: ACHILLEA MILLEFOLIUM\RUBIA TINCTURE\SENNA FRUIT EXTRACT\SENNA LEAF\TARAXACUM OFFICINALE
     Dosage: UNK UNK, QD
  9. TAKEPRON [Concomitant]
     Active Substance: LANSOPRAZOLE
     Dosage: 30 UNK, 1 TABLET, QD
  10. ALLOPURINOL. [Concomitant]
     Active Substance: ALLOPURINOL
     Dosage: 1 TABLET, QD

REACTIONS (1)
  - Renal impairment [Recovering/Resolving]

NARRATIVE: CASE EVENT DATE: 20190621
